FAERS Safety Report 16902451 (Version 4)
Quarter: 2022Q1

REPORT INFORMATION
  Report Type: Report from Study
  Country: CZ (occurrence: None)
  Receive Date: 20191010
  Receipt Date: 20220210
  Transmission Date: 20220423
  Serious: Yes (Hospitalization)
  Sender: FDA-Public Use
  Company Number: CZ-ROCHE-2434915

PATIENT
  Age: 75 Year
  Sex: Male
  Weight: 83 kg

DRUGS (15)
  1. VENETOCLAX [Suspect]
     Active Substance: VENETOCLAX
     Indication: Chronic lymphocytic leukaemia
     Route: 048
     Dates: start: 20150427, end: 20150503
  2. VENETOCLAX [Suspect]
     Active Substance: VENETOCLAX
     Route: 048
     Dates: start: 20150504, end: 20150510
  3. VENETOCLAX [Suspect]
     Active Substance: VENETOCLAX
     Route: 048
     Dates: start: 20150511, end: 20150517
  4. VENETOCLAX [Suspect]
     Active Substance: VENETOCLAX
     Route: 048
     Dates: start: 20150518, end: 20150524
  5. VENETOCLAX [Suspect]
     Active Substance: VENETOCLAX
     Route: 048
     Dates: start: 20150525, end: 20190926
  6. RITUXIMAB [Suspect]
     Active Substance: RITUXIMAB
     Indication: Chronic lymphocytic leukaemia
     Dosage: MOST RECENT DOSE WAS 02/AUG/2019(500 MG/M2)
     Route: 042
     Dates: start: 20150601
  7. LEVOTHYROXINUM NATRICUM [Concomitant]
     Indication: Hypothyroidism
     Dates: start: 2007
  8. FOSINOPRILUM NATRICUM [Concomitant]
     Indication: Hypertension
     Dates: start: 2013
  9. ALLOPURINOL [Concomitant]
     Active Substance: ALLOPURINOL
  10. MONOPRIL [Concomitant]
     Active Substance: FOSINOPRIL SODIUM
     Dates: start: 2013
  11. METOPROLOL SUCCINATE [Concomitant]
     Active Substance: METOPROLOL SUCCINATE
  12. TRIMETAZIDINE DIHYDROCHLORIDE [Concomitant]
     Active Substance: TRIMETAZIDINE DIHYDROCHLORIDE
     Dates: start: 2017
  13. ASPIRIN [Concomitant]
     Active Substance: ASPIRIN
     Dates: start: 2017, end: 20190927
  14. LEVOTHYROXINE SODIUM [Concomitant]
     Active Substance: LEVOTHYROXINE SODIUM
     Dosage: 100-500 MG
     Dates: start: 2007
  15. OMEPRAZOLE [Concomitant]
     Active Substance: OMEPRAZOLE
     Dates: start: 20181030

REACTIONS (1)
  - Jaundice cholestatic [Recovered/Resolved]

NARRATIVE: CASE EVENT DATE: 20190927
